FAERS Safety Report 20676930 (Version 1)
Quarter: 2022Q2

REPORT INFORMATION
  Report Type: Spontaneous
  Country: US (occurrence: US)
  Receive Date: 20220406
  Receipt Date: 20220406
  Transmission Date: 20220721
  Serious: Yes (Death, Hospitalization)
  Sender: FDA-Public Use
  Company Number: US-MTPC-MTDA2022-0008405

PATIENT
  Age: 67 Year
  Sex: Female

DRUGS (1)
  1. RADICAVA [Suspect]
     Active Substance: EDARAVONE
     Indication: Product used for unknown indication
     Dosage: 60 MILLIGRAM, QD 14 DAYS OUT OF 28 AND THEN 10 DAYS OUT OF 14 DAYS
     Route: 042
     Dates: end: 20220311

REACTIONS (2)
  - Death [Fatal]
  - Hospitalisation [Unknown]

NARRATIVE: CASE EVENT DATE: 20220329
